FAERS Safety Report 5381897-8 (Version None)
Quarter: 2007Q2

REPORT INFORMATION
  Report Type: 
  Country: None (occurrence: None)
  Receive Date: 20070629
  Receipt Date: 20070409
  Transmission Date: 20071010
  Serious: No
  Sender: FDA-Public Use
  Company Number: PHEH2007US04865

PATIENT
  Age: 73 Year
  Sex: Female

DRUGS (1)
  1. EXJADE [Suspect]
     Indication: IRON OVERLOAD
     Dosage: 1000 MG, QD, ORAL
     Route: 048
     Dates: start: 20070407, end: 20070407

REACTIONS (6)
  - ARTHRALGIA [None]
  - DIARRHOEA [None]
  - FATIGUE [None]
  - HEADACHE [None]
  - MUSCLE SPASMS [None]
  - PAIN [None]
